FAERS Safety Report 4515659-8 (Version None)
Quarter: 2004Q4

REPORT INFORMATION
  Report Type: 
  Country: None (occurrence: None)
  Receive Date: 20040930
  Receipt Date: 20040729
  Transmission Date: 20050328
  Serious: No
  Sender: FDA-Public Use
  Company Number: USA-2004-0016229

PATIENT
  Sex: Female

DRUGS (1)
  1. SPECTRACEF [Suspect]

REACTIONS (1)
  - PALPITATIONS [None]
